FAERS Safety Report 20954346 (Version 1)
Quarter: 2022Q2

REPORT INFORMATION
  Report Type: Spontaneous
  Country: US (occurrence: US)
  Receive Date: 20220614
  Receipt Date: 20220614
  Transmission Date: 20220721
  Serious: Yes (Hospitalization, Other)
  Sender: FDA-Public Use
  Company Number: US-CELGENE-USA-20210202025

PATIENT
  Age: 20 Year
  Sex: Male
  Weight: 98 kg

DRUGS (12)
  1. AZACITIDINE [Suspect]
     Active Substance: AZACITIDINE
     Indication: Neoplasm malignant
     Dosage: FREQUENCY TEXT: NOT PROVIDED
     Route: 042
     Dates: start: 20200813, end: 20200924
  2. AZACITIDINE [Suspect]
     Active Substance: AZACITIDINE
     Dosage: FREQUENCY TEXT: NOT PROVIDED
     Route: 042
     Dates: start: 20201102, end: 20201105
  3. AZACITIDINE [Suspect]
     Active Substance: AZACITIDINE
     Dosage: 75 MILLIGRAM/SQ. METER
     Route: 042
     Dates: start: 20201204, end: 20201209
  4. VENETOCLAX [Suspect]
     Active Substance: VENETOCLAX
     Indication: Neoplasm malignant
     Dosage: 100 MILLIGRAM
     Route: 048
     Dates: start: 20201201, end: 20201201
  5. VENETOCLAX [Suspect]
     Active Substance: VENETOCLAX
     Dosage: 200 MILLIGRAM
     Route: 048
     Dates: start: 20201202, end: 20201202
  6. VENETOCLAX [Suspect]
     Active Substance: VENETOCLAX
     Dosage: 400 MILLIGRAM
     Route: 048
     Dates: start: 20201203, end: 20210127
  7. VENETOCLAX [Suspect]
     Active Substance: VENETOCLAX
     Dosage: 400 MILLIGRAM
     Route: 048
     Dates: start: 20210211
  8. DECITABINE [Suspect]
     Active Substance: DECITABINE
     Indication: Neoplasm malignant
     Dosage: 20 MILLIGRAM/SQ. METER
     Route: 042
     Dates: start: 20210112, end: 20210116
  9. DECITABINE [Suspect]
     Active Substance: DECITABINE
     Indication: Myelodysplastic syndrome
     Dosage: 20 MILLIGRAM/SQ. METER
     Route: 042
     Dates: start: 20210116
  10. SEPTRA [Concomitant]
     Active Substance: SULFAMETHOXAZOLE\TRIMETHOPRIM
     Indication: Infection prophylaxis
     Dosage: FREQUENCY TEXT: ON WEEKENDS?320 MILLIGRAM
     Route: 048
     Dates: start: 20201124, end: 20210221
  11. VALCYTE [Concomitant]
     Active Substance: VALGANCICLOVIR HYDROCHLORIDE
     Indication: Antiviral prophylaxis
     Dosage: FREQUENCY TEXT: ON WEEKENDS?900 MILLIGRAM
     Route: 048
     Dates: start: 20200923, end: 20210225
  12. FLUCONAZOLE [Concomitant]
     Active Substance: FLUCONAZOLE
     Indication: Pneumonia fungal
     Dosage: 400 MILLIGRAM
     Route: 048
     Dates: start: 20201125

REACTIONS (2)
  - Colitis [Recovered/Resolved]
  - Febrile neutropenia [Recovered/Resolved]

NARRATIVE: CASE EVENT DATE: 20210127
